FAERS Safety Report 22222920 (Version 1)
Quarter: 2023Q2

REPORT INFORMATION
  Report Type: Spontaneous
  Country: None (occurrence: US)
  Receive Date: 20230418
  Receipt Date: 20230418
  Transmission Date: 20230721
  Serious: No
  Sender: FDA-Public Use
  Company Number: US-B.Braun Medical Inc.-2140506

PATIENT
  Age: 72 Year
  Sex: Female
  Weight: 105.45 kg

DRUGS (1)
  1. BUPIVACAINE HYDROCHLORIDE WITH DEXTROSE [Suspect]
     Active Substance: BUPIVACAINE HYDROCHLORIDE
     Indication: Anaesthesia

REACTIONS (1)
  - Anaesthetic complication [Recovered/Resolved]
